FAERS Safety Report 4471855-X (Version None)
Quarter: 2004Q4

REPORT INFORMATION
  Report Type: 
  Country: None (occurrence: None)
  Receive Date: 20041006
  Receipt Date: 20040927
  Transmission Date: 20050328
  Serious: Yes (Life-Threatening, Hospitalization, Other)
  Sender: FDA-Public Use
  Company Number: 2004065095

PATIENT
  Age: 68 Year
  Sex: Male

DRUGS (14)
  1. CARDENALIN (DOXAZOSIN) [Suspect]
     Indication: HYPERTENSION
     Dosage: 4 MG (2 IN 1 D), ORAL
     Route: 048
     Dates: start: 20040326, end: 20040906
  2. BACTRIM [Suspect]
     Indication: CYSTITIS NONINFECTIVE
     Dosage: 2NIN 1 D ORAL
     Route: 048
     Dates: start: 20040804, end: 20040906
  3. CIMETIDINE [Suspect]
     Indication: GASTRITIS
     Dosage: 1IN 1 D, ORAL
     Route: 048
     Dates: start: 20030122, end: 20040906
  4. TICLOPIDINE HCL [Suspect]
     Indication: AGE INDETERMINATE MYOCARDIAL INFARCTION
     Dosage: 2 IN 1 D, ORAL
     Route: 048
     Dates: start: 20011001, end: 20040906
  5. APRINDINE HYDROCHLORIDE (APRINDINE HYDROCHLORIDE) [Suspect]
     Indication: ATRIAL FIBRILLATION
     Dosage: 2 IN 1 D, ORAL
     Route: 048
     Dates: start: 20020501, end: 20040906
  6. AMLODIPINE BESYLATE [Concomitant]
  7. TEMOCAPRIL HYDROCHLORIDE (TEMOCAPRIL HYDROCHLORIDE) [Concomitant]
  8. ALFACALCIDOL (ALFACALCIDOL) [Concomitant]
  9. METILDIGOXIN (METILDIGOXIN) [Concomitant]
  10. CALCIUM CARBONATE (CALCIUM CARBONATE) [Concomitant]
  11. SODIUM POLYSTYRENE SULFONATE (SODIUM POLYSTYRENE SULFONATE) [Concomitant]
  12. BROTIZOLAM (BROTIZOLAM) [Concomitant]
  13. SENNA LEAF (SENNA LEAF) [Concomitant]
  14. NIFEDIPINE [Concomitant]

REACTIONS (7)
  - APLASTIC ANAEMIA [None]
  - ATRIAL FIBRILLATION [None]
  - BODY TEMPERATURE INCREASED [None]
  - BONE MARROW DEPRESSION [None]
  - GASTRITIS [None]
  - PHARYNGOLARYNGEAL PAIN [None]
  - STOMATITIS [None]
